FAERS Safety Report 12781851 (Version 1)
Quarter: 2016Q3

REPORT INFORMATION
  Report Type: Report from Study
  Country: DE (occurrence: DE)
  Receive Date: 20160926
  Receipt Date: 20160926
  Transmission Date: 20161109
  Serious: Yes (Hospitalization)
  Sender: FDA-Public Use
  Company Number: US-ASTRAZENECA-2016SF02100

PATIENT
  Sex: Male

DRUGS (8)
  1. SYNAGIS [Suspect]
     Active Substance: PALIVIZUMAB
     Indication: ANTIVIRAL PROPHYLAXIS
     Dosage: 105.0MG ONCE/SINGLE ADMINISTRATION
     Route: 030
     Dates: start: 20101221, end: 20101221
  2. SYNAGIS [Suspect]
     Active Substance: PALIVIZUMAB
     Indication: PREMATURE BABY
     Dosage: 120.0MG ONCE/SINGLE ADMINISTRATION
     Route: 030
     Dates: start: 20110228, end: 20110228
  3. SYNAGIS [Suspect]
     Active Substance: PALIVIZUMAB
     Indication: ANTIVIRAL PROPHYLAXIS
     Dosage: 98.0MG ONCE/SINGLE ADMINISTRATION
     Route: 030
     Dates: start: 20101119, end: 20101119
  4. SYNAGIS [Suspect]
     Active Substance: PALIVIZUMAB
     Indication: ANTIVIRAL PROPHYLAXIS
     Dosage: 113.0MG ONCE/SINGLE ADMINISTRATION
     Route: 030
     Dates: start: 20110118, end: 20110118
  5. SYNAGIS [Suspect]
     Active Substance: PALIVIZUMAB
     Indication: PREMATURE BABY
     Dosage: 98.0MG ONCE/SINGLE ADMINISTRATION
     Route: 030
     Dates: start: 20101119, end: 20101119
  6. SYNAGIS [Suspect]
     Active Substance: PALIVIZUMAB
     Indication: PREMATURE BABY
     Dosage: 105.0MG ONCE/SINGLE ADMINISTRATION
     Route: 030
     Dates: start: 20101221, end: 20101221
  7. SYNAGIS [Suspect]
     Active Substance: PALIVIZUMAB
     Indication: PREMATURE BABY
     Dosage: 113.0MG ONCE/SINGLE ADMINISTRATION
     Route: 030
     Dates: start: 20110118, end: 20110118
  8. SYNAGIS [Suspect]
     Active Substance: PALIVIZUMAB
     Indication: ANTIVIRAL PROPHYLAXIS
     Dosage: 120.0MG ONCE/SINGLE ADMINISTRATION
     Route: 030
     Dates: start: 20110228, end: 20110228

REACTIONS (2)
  - Respiratory syncytial virus test positive [Unknown]
  - Nosocomial infection [Unknown]
